FAERS Safety Report 16137020 (Version 2)
Quarter: 2019Q2

REPORT INFORMATION
  Report Type: Report from Study
  Country: None (occurrence: US)
  Receive Date: 20190329
  Receipt Date: 20190404
  Transmission Date: 20190711
  Serious: Yes (Hospitalization, Other)
  Sender: FDA-Public Use
  Company Number: US-ABBVIE-19S-163-2721669-00

PATIENT
  Sex: Female
  Weight: 49.94 kg

DRUGS (12)
  1. PROMETHAZINE [Concomitant]
     Active Substance: PROMETHAZINE\PROMETHAZINE HYDROCHLORIDE
     Indication: NAUSEA
  2. MUSCADINE GRAPE EXTRACT [Concomitant]
     Indication: ANTIOXIDANT THERAPY
  3. MIRTAZIPINE [Concomitant]
     Active Substance: MIRTAZAPINE
     Indication: SLEEP DISORDER THERAPY
  4. HYDROMORPHONE [Concomitant]
     Active Substance: HYDROMORPHONE
     Indication: GASTRITIS
  5. MUSCADINE GRAPE EXTRACT [Concomitant]
     Indication: DIABETES MELLITUS
  6. CARVEDILOL. [Concomitant]
     Active Substance: CARVEDILOL
     Indication: HYPERTENSION
  7. ZOLOFT [Concomitant]
     Active Substance: SERTRALINE HYDROCHLORIDE
     Indication: ANXIETY
  8. HYDROMORPHONE [Concomitant]
     Active Substance: HYDROMORPHONE
     Indication: PAIN MANAGEMENT
  9. AMLODIPINE [Concomitant]
     Active Substance: AMLODIPINE BESYLATE
     Indication: HYPERTENSION
  10. MIRTAZIPINE [Concomitant]
     Active Substance: MIRTAZAPINE
     Indication: DECREASED APPETITE
  11. CREON [Suspect]
     Active Substance: PANCRELIPASE AMYLASE\PANCRELIPASE LIPASE\PANCRELIPASE PROTEASE
     Indication: PANCREATITIS CHRONIC
     Dosage: 3 CAPSULES WITH MEALS AND 1 WITH SNACKS
     Route: 048
     Dates: start: 2017
  12. OMEPRAZOLE. [Concomitant]
     Active Substance: OMEPRAZOLE
     Indication: GASTROOESOPHAGEAL REFLUX DISEASE

REACTIONS (10)
  - Weight increased [Recovered/Resolved]
  - Malnutrition [Recovering/Resolving]
  - Vomiting [Recovered/Resolved]
  - Red blood cell abnormality [Recovering/Resolving]
  - Haemoglobin decreased [Recovering/Resolving]
  - Diabetes mellitus [Recovering/Resolving]
  - Dyspnoea [Recovered/Resolved]
  - Fatigue [Recovering/Resolving]
  - Speech disorder [Recovered/Resolved]
  - Gastrooesophageal reflux disease [Unknown]

NARRATIVE: CASE EVENT DATE: 2018
